FAERS Safety Report 7530326-4 (Version None)
Quarter: 2011Q2

REPORT INFORMATION
  Report Type: 
  Country: None (occurrence: None)
  Receive Date: 20110607
  Receipt Date: 20110524
  Transmission Date: 20111010
  Serious: No
  Sender: FDA-Public Use
  Company Number: US-B.I. PHARMACEUTICALS,INC./RIDGEFIELD-2011-BP-13899BP

PATIENT
  Age: 88 Year
  Sex: Female

DRUGS (6)
  1. METOPROLOL SUCCINATE [Concomitant]
     Indication: HYPERTENSION
     Route: 048
  2. POTASSIUM CHLORIDE [Concomitant]
     Indication: ELECTROLYTE SUBSTITUTION THERAPY
     Route: 048
  3. LOSARTAN POTASSIUM [Concomitant]
     Indication: HYPERTENSION
     Route: 048
  4. EYE VITAMIN [Concomitant]
     Indication: MACULAR DEGENERATION
     Route: 048
     Dates: start: 20100101
  5. PRADAXA [Suspect]
     Indication: ATRIAL FIBRILLATION
     Dosage: 300 MG
     Route: 048
     Dates: start: 20110519
  6. CENTRUM SILVER [Concomitant]
     Indication: PROPHYLAXIS
     Route: 048

REACTIONS (3)
  - SOMNOLENCE [None]
  - DYSPEPSIA [None]
  - FATIGUE [None]
